FAERS Safety Report 18512063 (Version 2)
Quarter: 2020Q4

REPORT INFORMATION
  Report Type: Spontaneous
  Country: FR (occurrence: FR)
  Receive Date: 20201117
  Receipt Date: 20201214
  Transmission Date: 20210114
  Serious: Yes (Life-Threatening)
  Sender: FDA-Public Use
  Company Number: NVSC2020FR305708

PATIENT
  Age: 22 Year
  Sex: Female

DRUGS (12)
  1. KETAMINE [Suspect]
     Active Substance: KETAMINE
     Indication: GENERAL ANAESTHESIA
     Dosage: 25 MG, TOTAL
     Route: 042
     Dates: start: 20190920, end: 20190920
  2. PROFENID [Suspect]
     Active Substance: KETOPROFEN
     Indication: PAIN
     Dosage: 150 MG, TOTAL
     Route: 040
     Dates: start: 20190920, end: 20190920
  3. PERFALGAN [Concomitant]
     Active Substance: ACETAMINOPHEN
     Indication: PAIN
     Dosage: 1 G, TOTAL
     Route: 041
     Dates: start: 20190920, end: 20190921
  4. ACUPAN [Concomitant]
     Active Substance: NEFOPAM HYDROCHLORIDE
     Indication: PAIN
     Dosage: 10 MG, TOTAL
     Route: 040
     Dates: start: 20190920, end: 20190921
  5. CEFAZOLIN [Suspect]
     Active Substance: CEFAZOLIN
     Indication: ANTIBIOTIC PROPHYLAXIS
     Dosage: 2 G, TOTAL
     Route: 040
     Dates: start: 20190920, end: 20190920
  6. DEXAMETHASONE. [Suspect]
     Active Substance: DEXAMETHASONE
     Indication: PROPHYLAXIS
     Dosage: 10 MG, TOTAL
     Route: 040
     Dates: start: 20190920, end: 20190920
  7. DIPRIVAN [Suspect]
     Active Substance: PROPOFOL
     Indication: GENERAL ANAESTHESIA
     Dosage: 300 UG, TOTAL
     Route: 040
     Dates: start: 20190920, end: 20190920
  8. SUFENTANIL [Suspect]
     Active Substance: SUFENTANIL
     Indication: GENERAL ANAESTHESIA
     Dosage: 40UG (25 + 15 ?G)
     Route: 042
     Dates: start: 20190920, end: 20190920
  9. HYPNOVEL [Suspect]
     Active Substance: MIDAZOLAM
     Indication: GENERAL ANAESTHESIA
     Dosage: 2 MG, TOTAL
     Route: 040
     Dates: start: 20190920, end: 20190920
  10. SEVORANE [Concomitant]
     Active Substance: SEVOFLURANE
     Indication: ANAESTHESIA
     Dosage: UNK, LIQUID FOR VAPOUR INHALATION
     Route: 049
     Dates: start: 20190920, end: 20190920
  11. DROLEPTAN [Suspect]
     Active Substance: DROPERIDOL
     Indication: PROPHYLAXIS
     Dosage: 1.25 MG, TOTAL
     Route: 040
     Dates: start: 20190920, end: 20190920
  12. NAROPEINE [Suspect]
     Active Substance: ROPIVACAINE HYDROCHLORIDE
     Indication: GENERAL ANAESTHESIA
     Dosage: UNK
     Route: 042
     Dates: start: 20190920, end: 20190920

REACTIONS (4)
  - Urticaria [Recovered/Resolved]
  - Hypotension [Recovered/Resolved]
  - Oxygen saturation decreased [Recovered/Resolved]
  - Tachycardia [Recovered/Resolved]

NARRATIVE: CASE EVENT DATE: 20190920
